FAERS Safety Report 6479680-5 (Version None)
Quarter: 2009Q4

REPORT INFORMATION
  Report Type: 
  Country: None (occurrence: None)
  Receive Date: 20091208
  Receipt Date: 20091130
  Transmission Date: 20100525
  Serious: Yes (Hospitalization)
  Sender: FDA-Public Use
  Company Number: FR-BAYER-200941370GPV

PATIENT
  Age: 64 Year
  Sex: Female

DRUGS (2)
  1. CIFLOX [Suspect]
     Indication: RESPIRATORY TRACT INFECTION
     Dosage: 2 DF ONE DAY
     Route: 048
     Dates: start: 20091007, end: 20091012
  2. PREVISCAN [Suspect]
     Indication: DRUG USE FOR UNKNOWN INDICATION
     Dosage: 1 DF
     Route: 048
     Dates: start: 20090201, end: 20091013

REACTIONS (2)
  - HAEMOPTYSIS [None]
  - HYPOPROTHROMBINAEMIA [None]
